FAERS Safety Report 10721183 (Version 1)
Quarter: 2015Q1

REPORT INFORMATION
  Report Type: Spontaneous
  Country: US (occurrence: US)
  Receive Date: 20150119
  Receipt Date: 20150119
  Transmission Date: 20150721
  Serious: Yes (Hospitalization)
  Sender: FDA-Public Use
  Company Number: US-UNITED THERAPEUTICS-UNT-2014-008353

PATIENT
  Age: 1 Year
  Sex: Female
  Weight: 6.49 kg

DRUGS (4)
  1. REMODULIN [Suspect]
     Active Substance: TREPROSTINIL
     Indication: PULMONARY ARTERIAL HYPERTENSION
     Dosage: 0.058 ?G/KG, CONTINUING
     Route: 058
     Dates: start: 20140501
  2. REVATIO [Concomitant]
     Active Substance: SILDENAFIL CITRATE
     Indication: PRODUCT USED FOR UNKNOWN INDICATION
  3. REMODULIN [Suspect]
     Active Substance: TREPROSTINIL
     Indication: PULMONARY HYPERTENSION
     Dosage: 0.060 ?G/KG, CONTINUING
     Route: 058
     Dates: start: 20140501
  4. REMODULIN [Suspect]
     Active Substance: TREPROSTINIL
     Indication: COR PULMONALE CHRONIC
     Dosage: 0.055 ?G/KG, CONTINUING
     Route: 058
     Dates: start: 20140501

REACTIONS (5)
  - Infusion site haemorrhage [Unknown]
  - Device dislocation [Unknown]
  - Device occlusion [Unknown]
  - Drug dose omission [Unknown]
  - Device issue [Unknown]

NARRATIVE: CASE EVENT DATE: 20140929
